FAERS Safety Report 11870809 (Version 1)
Quarter: 2015Q4

REPORT INFORMATION
  Report Type: Spontaneous
  Country: NL (occurrence: NL)
  Receive Date: 20151228
  Receipt Date: 20151228
  Transmission Date: 20160305
  Serious: Yes (Congenital Anomaly)
  Sender: FDA-Public Use
  Company Number: NL-TEVA-618641ACC

PATIENT
  Age: 0 Day
  Sex: Male
  Weight: 2.7 kg

DRUGS (2)
  1. METHOTREXATE [Suspect]
     Active Substance: METHOTREXATE
     Indication: COLITIS ULCERATIVE
     Dosage: ONCE A WEEK 1.5 PIECES, EXTRA INFO: 15 MG
     Route: 064
     Dates: start: 201407, end: 201503
  2. TRINORDIOL DRAGEE [Concomitant]
     Route: 064
     Dates: end: 201503

REACTIONS (2)
  - External auditory canal atresia [Unknown]
  - Ectopic kidney [Unknown]

NARRATIVE: CASE EVENT DATE: 20151015
